FAERS Safety Report 4535984-4 (Version None)
Quarter: 2004Q4

REPORT INFORMATION
  Report Type: 
  Country: None (occurrence: None)
  Receive Date: 20041220
  Receipt Date: 20041207
  Transmission Date: 20050328
  Serious: Yes (Disabling, Other)
  Sender: FDA-Public Use
  Company Number: 200407879

PATIENT
  Age: 55 Year
  Sex: Female

DRUGS (1)
  1. BOTOX [Suspect]
     Indication: FACIAL SPASM
     Dates: start: 19930101, end: 19961201

REACTIONS (14)
  - ARTHROPATHY [None]
  - DEPRESSION [None]
  - DRUG EFFECT DECREASED [None]
  - DRUG INEFFECTIVE [None]
  - FACIAL PALSY [None]
  - IMPAIRED WORK ABILITY [None]
  - INGROWING NAIL [None]
  - INJECTION SITE MOVEMENT IMPAIRMENT [None]
  - MUSCULAR WEAKNESS [None]
  - NEPHROLITHIASIS [None]
  - PAIN IN EXTREMITY [None]
  - PARONYCHIA [None]
  - SOCIAL PROBLEM [None]
  - TOE DEFORMITY [None]
